FAERS Safety Report 7558044-7 (Version None)
Quarter: 2011Q2

REPORT INFORMATION
  Report Type: 
  Country: None (occurrence: None)
  Receive Date: 20110620
  Receipt Date: 20110610
  Transmission Date: 20111010
  Serious: Yes (Hospitalization)
  Sender: FDA-Public Use
  Company Number: PHHY2011US51497

PATIENT
  Sex: Male

DRUGS (2)
  1. PIPERACILLIN AND TAZOBACTAM [Suspect]
  2. SULFAMETHOXAZOLE AND TRIMETHOPRIM [Suspect]
     Route: 048

REACTIONS (13)
  - PYREXIA [None]
  - EPIDERMAL NECROSIS [None]
  - RASH MACULO-PAPULAR [None]
  - HYPOTENSION [None]
  - DERMATITIS [None]
  - SKIN EXFOLIATION [None]
  - STAPHYLOCOCCAL BACTERAEMIA [None]
  - ORAL DISORDER [None]
  - DRUG RESISTANCE [None]
  - PRURITUS [None]
  - EOSINOPHIL COUNT ABNORMAL [None]
  - STEVENS-JOHNSON SYNDROME [None]
  - DEVICE RELATED INFECTION [None]
